FAERS Safety Report 8381946-9 (Version None)
Quarter: 2012Q2

REPORT INFORMATION
  Report Type: 
  Country: None (occurrence: None)
  Receive Date: 20120524
  Receipt Date: 20120509
  Transmission Date: 20120825
  Serious: No
  Sender: FDA-Public Use
  Company Number: JP-JNJFOC-20120511371

PATIENT
  Age: 7 Decade
  Sex: Male

DRUGS (5)
  1. FENTANYL-100 [Suspect]
     Dosage: 12.5+25UG/HR
     Route: 062
     Dates: start: 20111023, end: 20111023
  2. MIYA BM [Concomitant]
     Route: 048
  3. FENTANYL-100 [Suspect]
     Indication: PRODUCT USED FOR UNKNOWN INDICATION
     Dosage: 12.5+25 UG/HR
     Route: 062
     Dates: start: 20111015, end: 20111015
  4. FENTANYL-100 [Suspect]
     Dosage: 12.5 +25 UG/HR
     Route: 062
     Dates: start: 20111019, end: 20111019
  5. RACOL [Concomitant]
     Route: 065

REACTIONS (1)
  - DRUG PRESCRIBING ERROR [None]
